FAERS Safety Report 4290585-0 (Version None)
Quarter: 2004Q1

REPORT INFORMATION
  Report Type: 
  Country: None (occurrence: None)
  Receive Date: 20040209
  Receipt Date: 20040130
  Transmission Date: 20041129
  Serious: Yes (Hospitalization, Other)
  Sender: FDA-Public Use
  Company Number: 2003-07-3454

PATIENT
  Age: 18 Year
  Sex: Female
  Weight: 68 kg

DRUGS (10)
  1. RIBAVIRIN [Suspect]
     Indication: SEVERE ACUTE RESPIRATORY SYNDROME
     Dosage: SEE IMAGE
     Route: 048
     Dates: start: 20030409, end: 20030409
  2. RIBAVIRIN [Suspect]
     Indication: SEVERE ACUTE RESPIRATORY SYNDROME
     Dosage: SEE IMAGE
     Route: 048
     Dates: start: 20030409, end: 20030412
  3. RIBAVIRIN [Suspect]
     Indication: SEVERE ACUTE RESPIRATORY SYNDROME
     Dosage: SEE IMAGE
     Route: 048
     Dates: start: 20030412, end: 20030414
  4. RIBAVIRIN [Suspect]
     Indication: SEVERE ACUTE RESPIRATORY SYNDROME
     Dosage: SEE IMAGE
     Route: 048
     Dates: start: 20030414, end: 20030419
  5. VIRAZOLE [Suspect]
     Indication: SEVERE ACUTE RESPIRATORY SYNDROME
     Dosage: 2-4 GM QD* INTRAVENOUS
     Route: 042
     Dates: start: 20030409, end: 20030412
  6. LEVOFLOXACIN [Concomitant]
  7. PREDNISONE [Concomitant]
  8. PREDNISONE [Concomitant]
  9. AZITHROMYCIN TABLETS [Concomitant]
  10. CEFTRIAXONE [Concomitant]

REACTIONS (3)
  - ASPARTATE AMINOTRANSFERASE INCREASED [None]
  - BLOOD ALKALINE PHOSPHATASE INCREASED [None]
  - BLOOD BILIRUBIN INCREASED [None]
